FAERS Safety Report 7548343-7 (Version None)
Quarter: 2011Q2

REPORT INFORMATION
  Report Type: 
  Country: None (occurrence: None)
  Receive Date: 20110615
  Receipt Date: 20110612
  Transmission Date: 20111010
  Serious: Yes (Other)
  Sender: FDA-Public Use
  Company Number: US-PFIZER INC-2007083905

PATIENT
  Sex: Female
  Weight: 90.7 kg

DRUGS (7)
  1. CHANTIX [Suspect]
     Dosage: UNK
     Route: 048
     Dates: end: 20080401
  2. CHANTIX [Suspect]
     Dosage: 1 MG, 2X/DAY
     Route: 048
     Dates: start: 20110501, end: 20110101
  3. DIPHENHYDRAMINE [Concomitant]
     Indication: PANIC ATTACK
  4. CHANTIX [Suspect]
     Dosage: 0.5 MG, 1X/DAY
     Route: 048
     Dates: start: 20110504, end: 20110501
  5. PROZAC [Concomitant]
     Indication: DEPRESSION
  6. DIPHENHYDRAMINE [Concomitant]
     Indication: ANXIETY
  7. CHANTIX [Suspect]
     Indication: SMOKING CESSATION THERAPY
     Dosage: 0.5 MG, 1X/DAY
     Route: 048
     Dates: start: 20070923

REACTIONS (5)
  - MAJOR DEPRESSION [None]
  - HOSTILITY [None]
  - AGITATION [None]
  - SLEEP DISORDER [None]
  - NAUSEA [None]
